FAERS Safety Report 5522799-3 (Version None)
Quarter: 2007Q4

REPORT INFORMATION
  Report Type: 
  Country: None (occurrence: None)
  Receive Date: 20071120
  Receipt Date: 20071113
  Transmission Date: 20080405
  Serious: Yes (Hospitalization)
  Sender: FDA-Public Use
  Company Number: GB-ABBOTT-07P-167-0418097-00

PATIENT
  Sex: Male

DRUGS (1)
  1. HUMIRA [Suspect]
     Indication: ANKYLOSING SPONDYLITIS
     Dates: start: 20050101

REACTIONS (9)
  - ANKYLOSING SPONDYLITIS [None]
  - BONE PAIN [None]
  - DEPRESSED MOOD [None]
  - EMOTIONAL DISTRESS [None]
  - FEELING OF DESPAIR [None]
  - GENERAL PHYSICAL HEALTH DETERIORATION [None]
  - PAIN [None]
  - PELVIC PAIN [None]
  - UNEVALUABLE EVENT [None]
